FAERS Safety Report 21740682 (Version 1)
Quarter: 2022Q4

REPORT INFORMATION
  Report Type: Spontaneous
  Country: US (occurrence: None)
  Receive Date: 20221216
  Receipt Date: 20221216
  Transmission Date: 20230112
  Serious: Yes (unspecified)
  Sender: FDA-Public Use
  Company Number: None

PATIENT
  Age: 48 Year
  Sex: Male
  Weight: 82 kg

DRUGS (1)
  1. FLEXERIL [Suspect]
     Active Substance: CYCLOBENZAPRINE HYDROCHLORIDE
     Indication: Sciatica
     Dates: start: 20221201, end: 20221204

REACTIONS (4)
  - Product dispensing error [None]
  - Product dispensing issue [None]
  - Treatment delayed [None]
  - Victim of crime [None]

NARRATIVE: CASE EVENT DATE: 20221201
